FAERS Safety Report 6151014-5 (Version None)
Quarter: 2009Q2

REPORT INFORMATION
  Report Type: 
  Country: None (occurrence: None)
  Receive Date: 20090410
  Receipt Date: 20090225
  Transmission Date: 20091009
  Serious: No
  Sender: FDA-Public Use
  Company Number: A0770204A

PATIENT
  Age: 81 Year
  Sex: Female

DRUGS (16)
  1. TYKERB [Suspect]
     Indication: BREAST CANCER
     Dosage: 3CAP PER DAY
     Route: 048
     Dates: start: 20090217
  2. ARIMIDEX [Concomitant]
  3. LEVOTHYROXINE SODIUM [Concomitant]
  4. ALPRAZOLAM [Concomitant]
  5. OMEPRAZOLE [Concomitant]
  6. COZAAR [Concomitant]
  7. METHIMAZOLE [Concomitant]
  8. HYZAAR [Concomitant]
  9. DICYCLOMINE [Concomitant]
  10. PRAVACHOL [Concomitant]
  11. POTASSIUM CHLORIDE [Concomitant]
  12. FELODIPINE [Concomitant]
  13. FEXOFENADINE [Concomitant]
  14. ASPIRIN [Concomitant]
  15. HYDROCODONE BITARTRATE [Concomitant]
  16. STOOL SOFTENER [Concomitant]

REACTIONS (2)
  - ANOREXIA [None]
  - DIARRHOEA [None]
